FAERS Safety Report 5715390-7 (Version None)
Quarter: 2008Q2

REPORT INFORMATION
  Report Type: 
  Country: None (occurrence: None)
  Receive Date: 20080423
  Receipt Date: 20080416
  Transmission Date: 20081010
  Serious: Yes (Other)
  Sender: FDA-Public Use
  Company Number: US-PFIZER INC-2008033532

PATIENT
  Sex: Female

DRUGS (2)
  1. CELEBREX [Suspect]
  2. ALL OTHER THERAPEUTIC PRODUCTS [Suspect]

REACTIONS (2)
  - CARDIAC DISORDER [None]
  - ULCER [None]
